FAERS Safety Report 5854768-8 (Version None)
Quarter: 2008Q3

REPORT INFORMATION
  Report Type: 
  Country: None (occurrence: None)
  Receive Date: 20080822
  Receipt Date: 20071218
  Transmission Date: 20090109
  Serious: No
  Sender: FDA-Public Use
  Company Number: US-ABBOTT-08P-163-0432196-00

PATIENT
  Age: 52 Year
  Sex: Female

DRUGS (2)
  1. SYNTHROID [Suspect]
     Indication: THYROID DISORDER
     Dates: start: 20040101, end: 20040101
  2. LEVOTHYROXINE SODIUM [Concomitant]
     Indication: THYROID DISORDER

REACTIONS (1)
  - PALPITATIONS [None]
